FAERS Safety Report 10033998 (Version 2)
Quarter: 2014Q1

REPORT INFORMATION
  Report Type: Report from Study
  Country: DE (occurrence: DE)
  Receive Date: 20140325
  Receipt Date: 20140325
  Transmission Date: 20141002
  Serious: Yes (Hospitalization, Other)
  Sender: FDA-Public Use
  Company Number: DE-ROCHE-1272917

PATIENT
  Age: 58 Year
  Sex: Male
  Weight: 75.4 kg

DRUGS (4)
  1. MYCOPHENOLATE MOFETIL [Suspect]
     Indication: RENAL TRANSPLANT
     Route: 048
     Dates: start: 20101217
  2. BASILIXIMAB [Suspect]
     Indication: RENAL TRANSPLANT
     Dosage: LAST DOSE PRIOR TO AE: 21/DEC/2010
     Route: 042
     Dates: start: 20101221
  3. TACROLIMUS [Suspect]
     Indication: RENAL TRANSPLANT
     Route: 048
     Dates: start: 20101217
  4. PREDNISOLONE [Suspect]
     Indication: RENAL TRANSPLANT
     Route: 048
     Dates: start: 20101218

REACTIONS (5)
  - Focal segmental glomerulosclerosis [Recovered/Resolved with Sequelae]
  - Blood creatinine decreased [Recovered/Resolved with Sequelae]
  - Proteinuria [Recovered/Resolved with Sequelae]
  - Blood creatinine increased [Recovered/Resolved with Sequelae]
  - Proteinuria [Recovered/Resolved with Sequelae]
